FAERS Safety Report 6596385-0 (Version None)
Quarter: 2010Q1

REPORT INFORMATION
  Report Type: 
  Country: None (occurrence: None)
  Receive Date: 20100222
  Receipt Date: 20100222
  Transmission Date: 20100710
  Serious: Yes (Other)
  Sender: FDA-Public Use
  Company Number: None

PATIENT
  Age: 67 Year
  Sex: Female
  Weight: 54.4 kg

DRUGS (1)
  1. CIPRO [Suspect]

REACTIONS (1)
  - ROTATOR CUFF SYNDROME [None]
